FAERS Safety Report 6647883-2 (Version None)
Quarter: 2010Q1

REPORT INFORMATION
  Report Type: 
  Country: None (occurrence: None)
  Receive Date: 20100324
  Receipt Date: 20100315
  Transmission Date: 20100710
  Serious: Yes (Hospitalization)
  Sender: FDA-Public Use
  Company Number: FR-ASTRAZENECA-2010SE11957

PATIENT
  Age: 74 Year
  Sex: Male

DRUGS (9)
  1. NEXIUM [Suspect]
     Route: 048
     Dates: start: 20060701
  2. METHOTREXATE [Interacting]
     Indication: BURKITT'S LYMPHOMA
     Route: 042
     Dates: start: 20060726, end: 20060726
  3. ETOPOSIDE [Concomitant]
     Dates: start: 20060701
  4. IFOSFAMIDE [Concomitant]
     Dates: start: 20060701
  5. STILNOX [Concomitant]
     Dates: start: 20060701
  6. SOLU-MEDROL [Concomitant]
     Dates: start: 20060701
  7. CACIT VITAMINE D3 [Concomitant]
     Dates: start: 20060701
  8. LASIX [Concomitant]
     Dates: start: 20060701
  9. DIFFU K [Concomitant]
     Dates: start: 20060701

REACTIONS (4)
  - ANURIA [None]
  - DRUG INTERACTION [None]
  - DRUG LEVEL INCREASED [None]
  - RENAL FAILURE [None]
